FAERS Safety Report 5257835-5 (Version None)
Quarter: 2007Q1

REPORT INFORMATION
  Report Type: 
  Country: None (occurrence: None)
  Receive Date: 20070307
  Receipt Date: 20061107
  Transmission Date: 20070707
  Serious: No
  Sender: FDA-Public Use
  Company Number: US-GLAXOSMITHKLINE-A0620696A

PATIENT
  Age: 52 Year
  Sex: Female
  Weight: 137.7 kg

DRUGS (7)
  1. REQUIP [Suspect]
     Indication: RESTLESS LEGS SYNDROME
     Dosage: 1MG VARIABLE DOSE
     Route: 048
     Dates: start: 20051201, end: 20060801
  2. PROZAC [Concomitant]
     Dosage: 80MG IN THE MORNING
     Route: 048
     Dates: start: 20050920
  3. WELLBUTRIN SR [Concomitant]
     Dosage: 150MG TWICE PER DAY
     Route: 048
     Dates: start: 20060926
  4. PROPRANOLOL [Concomitant]
     Dosage: 20MG THREE TIMES PER DAY
     Route: 048
     Dates: start: 20060815
  5. OMEPRAZOLE [Concomitant]
     Route: 048
  6. ALLEGRA D 24 HOUR [Concomitant]
     Route: 048
  7. TRAZODONE HCL [Concomitant]
     Dosage: 50MG AT NIGHT
     Route: 048
     Dates: start: 20051103

REACTIONS (3)
  - ANXIETY [None]
  - PAIN IN EXTREMITY [None]
  - RESTLESS LEGS SYNDROME [None]
